FAERS Safety Report 8469624-9 (Version None)
Quarter: 2012Q2

REPORT INFORMATION
  Report Type: 
  Country: None (occurrence: None)
  Receive Date: 20120626
  Receipt Date: 20120515
  Transmission Date: 20120825
  Serious: No
  Sender: FDA-Public Use
  Company Number: US-TEVA-338561USA

PATIENT
  Sex: Male

DRUGS (3)
  1. ATORVASTATIN [Concomitant]
     Indication: HYPERCHOLESTEROLAEMIA
     Dosage: 20 MILLIGRAM;
     Route: 048
  2. QNASL [Suspect]
     Indication: RHINITIS ALLERGIC
     Dosage: 160 MICROGRAM;
     Route: 045
     Dates: start: 20120512
  3. LATANOPROST [Concomitant]
     Indication: GLAUCOMA
     Route: 031

REACTIONS (1)
  - BURNING SENSATION [None]
